FAERS Safety Report 5000041-X (Version None)
Quarter: 2006Q2

REPORT INFORMATION
  Report Type: 
  Country: None (occurrence: None)
  Receive Date: 20060509
  Receipt Date: 20060504
  Transmission Date: 20061013
  Serious: Yes (Hospitalization)
  Sender: FDA-Public Use
  Company Number: 200611799GDS

PATIENT
  Age: 15 Year
  Sex: Female

DRUGS (1)
  1. CIPROFLOXACIN [Suspect]
     Indication: HORDEOLUM
     Dosage: ONCE, ORAL
     Route: 048

REACTIONS (1)
  - ANAPHYLACTOID SHOCK [None]
